FAERS Safety Report 4984917-5 (Version None)
Quarter: 2006Q2

REPORT INFORMATION
  Report Type: 
  Country: None (occurrence: None)
  Receive Date: 20060426
  Receipt Date: 20060426
  Transmission Date: 20061013
  Serious: Yes (Life-Threatening, Hospitalization)
  Sender: FDA-Public Use
  Company Number: None

PATIENT
  Age: 17 Year
  Sex: Female
  Weight: 53 kg

DRUGS (13)
  1. BENZOCAINE  10%  BEUTLICH LP [Suspect]
     Indication: ECHOCARDIOGRAM
     Dosage: ONCE, OROPHARINGEAL
     Route: 049
     Dates: start: 20050620, end: 20050620
  2. HEPARIN [Concomitant]
  3. CARVEDILOL [Concomitant]
  4. POTASSIUM CHLORIDE [Concomitant]
  5. ENALAPRIL MALEATE [Concomitant]
  6. ASPIRIN [Concomitant]
  7. FERROUS POLYSACCHRIDE [Concomitant]
  8. VANCOMYCIN [Concomitant]
  9. PIPERCILLIN/TAZOBACTAM [Concomitant]
  10. INSULIN [Concomitant]
  11. ASCORBIC ACID [Concomitant]
  12. SPIRONOLACTONE [Concomitant]
  13. MORPHINE [Concomitant]

REACTIONS (1)
  - METHAEMOGLOBINAEMIA [None]
